FAERS Safety Report 13056276 (Version 1)
Quarter: 2016Q4

REPORT INFORMATION
  Report Type: Spontaneous
  Country: US (occurrence: US)
  Receive Date: 20161222
  Receipt Date: 20161222
  Transmission Date: 20170207
  Serious: No
  Sender: FDA-Public Use
  Company Number: US-PFIZER INC-2016557357

PATIENT
  Age: 75 Year
  Sex: Female

DRUGS (6)
  1. METHADONE [Concomitant]
     Active Substance: METHADONE HYDROCHLORIDE
     Dosage: 5 MG, UNK (EVERY EIGHT HOURS)
     Route: 048
  2. IBUPROFEN. [Concomitant]
     Active Substance: IBUPROFEN
     Dosage: 800 MG, (TWICE A DAY)
  3. MORPHINE [Concomitant]
     Active Substance: MORPHINE
     Dosage: 20 MG, UNK (EXTEND RELEASE PELLETS ),(EVERY TWELVE HOURS)
     Route: 048
  4. LYRICA [Suspect]
     Active Substance: PREGABALIN
     Dosage: 100 MG, 3X/DAY
     Route: 048
  5. LIDOCAINE. [Concomitant]
     Active Substance: LIDOCAINE
     Dosage: UNK UNK, 2X/DAY (ADHESIVE PATCH, MEDICATED SIG: APPLY 1 PATCH TO SKIN)
     Route: 061
  6. PERCOCET [Concomitant]
     Active Substance: ACETAMINOPHEN\OXYCODONE HYDROCHLORIDE
     Indication: PAIN
     Dosage: 1 DF, AS NEEDED (FOUR TIMES A DAY),(OXYCODONE HYDROCHLORIDE:10 MG, PARACETAMOL:325 MG)
     Route: 048

REACTIONS (1)
  - Headache [Unknown]
